FAERS Safety Report 5870916-8 (Version None)
Quarter: 2008Q3

REPORT INFORMATION
  Report Type: 
  Country: None (occurrence: None)
  Receive Date: 20080904
  Receipt Date: 20080902
  Transmission Date: 20090109
  Serious: Yes (Life-Threatening, Hospitalization)
  Sender: FDA-Public Use
  Company Number: US-ASTRAZENECA-2008UW18111

PATIENT
  Age: 29 Year
  Sex: Female

DRUGS (1)
  1. SEROQUEL [Suspect]
     Dosage: 10 TABLETS, 25 MG EACH
     Route: 048

REACTIONS (2)
  - INTENTIONAL OVERDOSE [None]
  - RESPIRATORY DEPRESSION [None]
